FAERS Safety Report 10239103 (Version 2)
Quarter: 2020Q2

REPORT INFORMATION
  Report Type: Spontaneous
  Country: US (occurrence: US)
  Receive Date: 20140616
  Receipt Date: 20200521
  Transmission Date: 20200713
  Serious: No
  Sender: FDA-Public Use
  Company Number: US-PFIZER INC-2014163190

PATIENT
  Age: 62 Year
  Sex: Male

DRUGS (3)
  1. XANAX [Suspect]
     Active Substance: ALPRAZOLAM
     Indication: SLEEP DISORDER
     Dosage: 1 TO 2 MG TWICE A DAY
  2. XANAX [Suspect]
     Active Substance: ALPRAZOLAM
     Indication: ANAL SPASM
  3. XANAX [Suspect]
     Active Substance: ALPRAZOLAM
     Indication: NEPHROPATHY

REACTIONS (2)
  - Amnesia [Unknown]
  - Therapeutic response unexpected [Unknown]
